FAERS Safety Report 14825525 (Version 1)
Quarter: 2018Q2

REPORT INFORMATION
  Report Type: Spontaneous
  Country: FR (occurrence: FR)
  Receive Date: 20180430
  Receipt Date: 20180430
  Transmission Date: 20180711
  Serious: Yes (Other)
  Sender: FDA-Public Use
  Company Number: FR-MERCK KGAA-2046784

PATIENT
  Age: 58 Year
  Sex: Female

DRUGS (1)
  1. NOVOTHYROX [Suspect]
     Active Substance: LEVOTHYROXINE SODIUM
     Indication: PRODUCT USED FOR UNKNOWN INDICATION
     Dates: end: 2017

REACTIONS (17)
  - Weight increased [None]
  - Loss of personal independence in daily activities [None]
  - Dyspnoea [None]
  - Blood thyroid stimulating hormone decreased [Recovered/Resolved]
  - Anxiety [Recovered/Resolved]
  - Depressed mood [Recovered/Resolved]
  - Loss of employment [None]
  - Fatigue [None]
  - Gastrointestinal disorder [None]
  - Asthenia [None]
  - Dyspepsia [None]
  - Loss of libido [None]
  - Impaired work ability [None]
  - Gait inability [None]
  - Amnesia [Recovered/Resolved]
  - Palpitations [None]
  - Oesophagitis [None]

NARRATIVE: CASE EVENT DATE: 20171110
